FAERS Safety Report 9728472 (Version 1)
Quarter: 2013Q4

REPORT INFORMATION
  Report Type: Spontaneous
  Country: US (occurrence: None)
  Receive Date: 20131203
  Receipt Date: 20131203
  Transmission Date: 20140711
  Serious: No
  Sender: FDA-Public Use
  Company Number: None

PATIENT
  Age: 71 Year
  Sex: Female

DRUGS (2)
  1. TREANDA [Suspect]
     Indication: PLASMA CELL MYELOMA
     Dates: start: 201309
  2. CARFILZOMIB [Suspect]
     Indication: PLASMA CELL MYELOMA
     Dates: start: 201309

REACTIONS (5)
  - Rotator cuff syndrome [None]
  - Tumour compression [None]
  - Groin pain [None]
  - Nerve compression [None]
  - Plasma cell myeloma recurrent [None]
